FAERS Safety Report 8429398-4 (Version None)
Quarter: 2012Q2

REPORT INFORMATION
  Report Type: 
  Country: None (occurrence: None)
  Receive Date: 20120612
  Receipt Date: 20120607
  Transmission Date: 20120825
  Serious: Yes (Other)
  Sender: FDA-Public Use
  Company Number: SG-SANOFI-AVENTIS-2012SA040333

PATIENT
  Age: 61 Year
  Sex: Female

DRUGS (1)
  1. HYDROXYCHLOROQUINE SULFATE [Suspect]
     Route: 048

REACTIONS (3)
  - RASH ERYTHEMATOUS [None]
  - OROPHARYNGEAL PAIN [None]
  - DIARRHOEA [None]
